FAERS Safety Report 4965329-7 (Version None)
Quarter: 2006Q2

REPORT INFORMATION
  Report Type: 
  Country: None (occurrence: None)
  Receive Date: 20060406
  Receipt Date: 20060105
  Transmission Date: 20061013
  Serious: Yes (Other)
  Sender: FDA-Public Use
  Company Number: US-MERCK-0601USA00616

PATIENT
  Age: 49 Year
  Sex: Male
  Weight: 99 kg

DRUGS (2)
  1. VIOXX [Suspect]
     Indication: PAIN
     Route: 048
     Dates: start: 20020801
  2. VIOXX [Suspect]
     Indication: OSTEOARTHRITIS
     Route: 048
     Dates: start: 20020801

REACTIONS (9)
  - CEREBROVASCULAR ACCIDENT [None]
  - FATIGUE [None]
  - HYPERLIPIDAEMIA [None]
  - HYPERTENSION [None]
  - PROCTALGIA [None]
  - PULMONARY EMBOLISM [None]
  - RASH [None]
  - SEXUAL DYSFUNCTION [None]
  - WEIGHT DECREASED [None]
